FAERS Safety Report 9321320 (Version 3)
Quarter: 2014Q2

REPORT INFORMATION
  Report Type: Report from Study
  Country: JP (occurrence: JP)
  Receive Date: 20130531
  Receipt Date: 20140509
  Transmission Date: 20141212
  Serious: Yes (Other)
  Sender: FDA-Public Use
  Company Number: JP-US-EMD SERONO, INC.-7193476

PATIENT
  Sex: Female
  Weight: 50 kg

DRUGS (3)
  1. GONAL-F RFF PEN [Suspect]
     Indication: OVULATION INDUCTION
     Route: 058
     Dates: start: 20100316, end: 20100319
  2. GONAL-F RFF PEN [Suspect]
     Route: 058
     Dates: start: 20100320, end: 20100322
  3. SUPRECUR [Concomitant]
     Indication: OVULATION INDUCTION
     Route: 045
     Dates: start: 20100323, end: 20100323

REACTIONS (1)
  - Abortion missed [Recovered/Resolved]
